FAERS Safety Report 19483502 (Version 1)
Quarter: 2021Q3

REPORT INFORMATION
  Report Type: Report from Study
  Country: US (occurrence: US)
  Receive Date: 20210701
  Receipt Date: 20210701
  Transmission Date: 20211014
  Serious: Yes (Hospitalization, Other)
  Sender: FDA-Public Use
  Company Number: US-JNJFOC-20210536529

PATIENT
  Age: 84 Year
  Sex: Female

DRUGS (2)
  1. SILDENAFIL. [Suspect]
     Active Substance: SILDENAFIL
     Indication: PRODUCT USED FOR UNKNOWN INDICATION
     Route: 065
  2. SELEXIPAG [Suspect]
     Active Substance: SELEXIPAG
     Indication: PULMONARY ARTERIAL HYPERTENSION
     Route: 065

REACTIONS (12)
  - Cardiac disorder [Recovering/Resolving]
  - Animal bite [Recovering/Resolving]
  - Exostosis [Unknown]
  - Arthralgia [Unknown]
  - Type 2 diabetes mellitus [Recovering/Resolving]
  - Malaise [Unknown]
  - Weight decreased [Unknown]
  - Diarrhoea [Not Recovered/Not Resolved]
  - Skin lesion [Unknown]
  - Blood cholesterol abnormal [Unknown]
  - Pain in jaw [Unknown]
  - Renal disorder [Recovering/Resolving]

NARRATIVE: CASE EVENT DATE: 202101
